FAERS Safety Report 4795835-X (Version None)
Quarter: 2005Q4

REPORT INFORMATION
  Report Type: 
  Country: None (occurrence: None)
  Receive Date: 20051007
  Receipt Date: 20050923
  Transmission Date: 20060501
  Serious: Yes (Other)
  Sender: FDA-Public Use
  Company Number: 2005132084

PATIENT
  Age: 33 Year
  Sex: Female
  Weight: 52.1637 kg

DRUGS (3)
  1. BENADRYL [Suspect]
     Indication: EUPHORIC MOOD
     Dosage: UP TO 32 TABLETS, ORAL
     Route: 048
  2. AMITRIPTYLINE HYDROCHLORIDE [Concomitant]
  3. OLANZAPINE [Concomitant]

REACTIONS (2)
  - CONVULSION [None]
  - INTENTIONAL DRUG MISUSE [None]
